FAERS Safety Report 5390320-9 (Version None)
Quarter: 2007Q3

REPORT INFORMATION
  Report Type: 
  Country: None (occurrence: None)
  Receive Date: 20070718
  Receipt Date: 20070711
  Transmission Date: 20080115
  Serious: Yes (Other)
  Sender: FDA-Public Use
  Company Number: CH-SANOFI-SYNTHELABO-A01200706595

PATIENT
  Age: 49 Year
  Sex: Female

DRUGS (2)
  1. DANATROL [Suspect]
     Indication: APLASTIC ANAEMIA
     Route: 048
     Dates: start: 20040503
  2. DANATROL [Suspect]
     Route: 048

REACTIONS (2)
  - OESTRADIOL INCREASED [None]
  - OVARIAN HYPERFUNCTION [None]
